FAERS Safety Report 20082788 (Version 1)
Quarter: 2021Q4

REPORT INFORMATION
  Report Type: Spontaneous
  Country: US (occurrence: US)
  Receive Date: 20211117
  Receipt Date: 20211117
  Transmission Date: 20220303
  Serious: No
  Sender: FDA-Public Use
  Company Number: US-LUPIN PHARMACEUTICALS INC.-2021-22337

PATIENT
  Sex: Male

DRUGS (3)
  1. ALBUTEROL SULFATE [Suspect]
     Active Substance: ALBUTEROL SULFATE
     Indication: Wheezing
     Dosage: UNK; INHALE 1 TO 2 PRN Q 4 H PRN WHEEZING, SOB OR COUGH
     Dates: start: 2021
  2. ALBUTEROL SULFATE [Suspect]
     Active Substance: ALBUTEROL SULFATE
     Indication: Dyspnoea
  3. ALBUTEROL SULFATE [Suspect]
     Active Substance: ALBUTEROL SULFATE
     Indication: Exercise adequate

REACTIONS (2)
  - Device delivery system issue [Unknown]
  - Off label use [Unknown]

NARRATIVE: CASE EVENT DATE: 20210101
